FAERS Safety Report 4276900-2 (Version None)
Quarter: 2004Q1

REPORT INFORMATION
  Report Type: 
  Country: None (occurrence: None)
  Receive Date: 20040120
  Receipt Date: 20031128
  Transmission Date: 20041129
  Serious: Yes (Death, Hospitalization)
  Sender: FDA-Public Use
  Company Number: FR-JNJFOC-20031105092

PATIENT
  Age: 86 Year
  Sex: Male
  Weight: 70 kg

DRUGS (2)
  1. FENTANYL [Suspect]
     Indication: CANCER PAIN
     Dosage: 25 UG/HR, 1 IN 3 DAY, TRANSDERMAL
     Route: 062
     Dates: start: 20031117, end: 20031121
  2. FRAGMIN [Concomitant]
     Indication: ANTICOAGULANT THERAPY
     Dosage: 2500 IU

REACTIONS (4)
  - HAEMATOMA [None]
  - HEPATIC FAILURE [None]
  - PROTHROMBIN TIME SHORTENED [None]
  - RESPIRATORY DISTRESS [None]
